FAERS Safety Report 18856603 (Version 1)
Quarter: 2021Q1

REPORT INFORMATION
  Report Type: Spontaneous
  Country: US (occurrence: US)
  Receive Date: 20210207
  Receipt Date: 20210207
  Transmission Date: 20210420
  Serious: No
  Sender: FDA-Public Use
  Company Number: US-JNJFOC-20210206501

PATIENT
  Age: 64 Year
  Sex: Female
  Weight: 54.48 kg

DRUGS (1)
  1. BALVERSA [Suspect]
     Active Substance: ERDAFITINIB
     Indication: BLADDER CANCER
     Route: 065
     Dates: start: 202001

REACTIONS (3)
  - Nail disorder [Unknown]
  - Incorrect dose administered [Unknown]
  - Depression [Unknown]

NARRATIVE: CASE EVENT DATE: 202001
